FAERS Safety Report 10233910 (Version 1)
Quarter: 2014Q2

REPORT INFORMATION
  Report Type: Spontaneous
  Country: NL (occurrence: NL)
  Receive Date: 20140612
  Receipt Date: 20140612
  Transmission Date: 20141212
  Serious: Yes (Hospitalization)
  Sender: FDA-Public Use
  Company Number: NL-WATSON-2014-12031

PATIENT
  Age: 16 Year
  Sex: Female
  Weight: 60 kg

DRUGS (1)
  1. METRONIDAZOLE [Suspect]
     Indication: AMOEBIC DYSENTERY
     Dosage: 1500 MG, TID
     Route: 048
     Dates: start: 20140520, end: 20140521

REACTIONS (4)
  - Hypersensitivity [Recovering/Resolving]
  - Hypoaesthesia [Recovering/Resolving]
  - Pharyngeal oedema [Recovering/Resolving]
  - Dizziness [Recovering/Resolving]
